FAERS Safety Report 5211785-9 (Version None)
Quarter: 2007Q1

REPORT INFORMATION
  Report Type: 
  Country: None (occurrence: None)
  Receive Date: 20070118
  Receipt Date: 20070112
  Transmission Date: 20070707
  Serious: Yes (Death, Life-Threatening, Hospitalization)
  Sender: FDA-Public Use
  Company Number: FR-AVENTIS-200710189FR

PATIENT
  Age: 82 Year
  Sex: Male

DRUGS (7)
  1. RIFADIN [Suspect]
     Route: 048
     Dates: start: 20061122, end: 20061125
  2. RIMIFON [Suspect]
     Route: 048
     Dates: start: 20061122, end: 20061125
  3. MYAMBUTOL [Suspect]
     Route: 048
     Dates: start: 20061122, end: 20061125
  4. PREVISCAN                          /00789001/ [Suspect]
     Indication: PULMONARY EMBOLISM
  5. LEVOTHYROXINE SODIUM [Concomitant]
     Indication: DRUG USE FOR UNKNOWN INDICATION
     Route: 048
  6. ISOPTIN [Concomitant]
     Indication: DRUG USE FOR UNKNOWN INDICATION
     Route: 048
  7. SINEMET [Concomitant]
     Indication: DRUG USE FOR UNKNOWN INDICATION
     Route: 048

REACTIONS (5)
  - DEATH [None]
  - DRUG INTERACTION [None]
  - INTERNATIONAL NORMALISED RATIO INCREASED [None]
  - OVERDOSE [None]
  - PROTHROMBIN TIME SHORTENED [None]
